FAERS Safety Report 11158516 (Version 1)
Quarter: 2015Q2

REPORT INFORMATION
  Report Type: Spontaneous
  Country: US (occurrence: None)
  Receive Date: 20150602
  Receipt Date: 20150602
  Transmission Date: 20150821
  Serious: Yes (Hospitalization)
  Sender: FDA-Public Use
  Company Number: None

PATIENT
  Age: 63 Year
  Sex: Female
  Weight: 99.7 kg

DRUGS (2)
  1. LISINOPRIL HCTZ [Concomitant]
     Active Substance: HYDROCHLOROTHIAZIDE\LISINOPRIL
  2. METFORMIN HYDROCHLORIDE. [Suspect]
     Active Substance: METFORMIN HYDROCHLORIDE
     Dates: start: 20150523

REACTIONS (11)
  - Dyspnoea [None]
  - Nausea [None]
  - Abdominal distension [None]
  - Pulmonary embolism [None]
  - Vomiting [None]
  - Ascites [None]
  - Abdominal pain [None]
  - Nodule [None]
  - Deep vein thrombosis [None]
  - Oedema peripheral [None]
  - Peritoneal disorder [None]

NARRATIVE: CASE EVENT DATE: 20150523
